FAERS Safety Report 24046210 (Version 1)
Quarter: 2024Q3

REPORT INFORMATION
  Report Type: Spontaneous
  Country: CN (occurrence: CN)
  Receive Date: 20240703
  Receipt Date: 20240703
  Transmission Date: 20241017
  Serious: Yes (Other)
  Sender: BIOTHERA PHARMACEUTICALS
  Company Number: CN-Bio-Thera Solutions, Ltd.-2158807

PATIENT
  Age: 67 Year
  Sex: Female
  Weight: 64 kg

DRUGS (3)
  1. AVZIVI [Suspect]
     Active Substance: BEVACIZUMAB\BEVACIZUMAB-TNJN
     Indication: Colon cancer
     Route: 041
     Dates: start: 20240607, end: 20240607
  2. OXALIPLATIN [Suspect]
     Active Substance: OXALIPLATIN
     Route: 041
     Dates: start: 20240608, end: 20240608
  3. CAPECITABINE [Suspect]
     Active Substance: CAPECITABINE
     Route: 048
     Dates: start: 20240608, end: 20240608

REACTIONS (1)
  - Hepatic function abnormal [Recovering/Resolving]

NARRATIVE: CASE EVENT DATE: 20240610
